FAERS Safety Report 9961712 (Version 1)
Quarter: 2014Q1

REPORT INFORMATION
  Report Type: Report from Study
  Country: US (occurrence: US)
  Receive Date: 20140305
  Receipt Date: 20140305
  Transmission Date: 20141002
  Serious: No
  Sender: FDA-Public Use
  Company Number: US-ABBVIE-13P-163-1111210-00

PATIENT
  Age: 47 Year
  Sex: Female

DRUGS (5)
  1. HUMIRA [Suspect]
     Indication: PRODUCT USED FOR UNKNOWN INDICATION
     Route: 058
     Dates: start: 201302
  2. 6-MP [Suspect]
     Indication: PRODUCT USED FOR UNKNOWN INDICATION
     Dates: end: 20130518
  3. ARMOUR THYROID [Concomitant]
     Indication: PRODUCT USED FOR UNKNOWN INDICATION
     Dosage: 60 MG ONCE DAILY
  4. LOSARTAN POTASSIUM [Concomitant]
     Indication: HYPERTENSION
     Dosage: 50 MG ONCE DAILY
  5. LIALDA [Concomitant]
     Indication: PRODUCT USED FOR UNKNOWN INDICATION
     Dosage: 1.2 GRAM THREE DAILY

REACTIONS (8)
  - Fatigue [Not Recovered/Not Resolved]
  - Confusional state [Not Recovered/Not Resolved]
  - Malaise [Not Recovered/Not Resolved]
  - Alopecia [Not Recovered/Not Resolved]
  - Intestinal ulcer [Not Recovered/Not Resolved]
  - Hepatic enzyme increased [Not Recovered/Not Resolved]
  - Injection site erythema [Not Recovered/Not Resolved]
  - Injection site papule [Not Recovered/Not Resolved]
